FAERS Safety Report 4822500-2 (Version None)
Quarter: 2005Q4

REPORT INFORMATION
  Report Type: 
  Country: None (occurrence: None)
  Receive Date: 20051104
  Receipt Date: 20051020
  Transmission Date: 20060501
  Serious: Yes (Hospitalization)
  Sender: FDA-Public Use
  Company Number: PAR_0400_2005

PATIENT
  Age: 71 Year
  Sex: Male
  Weight: 72 kg

DRUGS (1)
  1. CAPOTEN [Suspect]
     Indication: HYPERTENSION
     Dosage: 50 MG QDAY PO
     Route: 048
     Dates: start: 19950101, end: 20050801

REACTIONS (2)
  - NASOPHARYNGITIS [None]
  - TACHYCARDIA [None]
